FAERS Safety Report 17131315 (Version 2)
Quarter: 2020Q1

REPORT INFORMATION
  Report Type: Spontaneous
  Country: US (occurrence: US)
  Receive Date: 20191209
  Receipt Date: 20200120
  Transmission Date: 20200409
  Serious: No
  Sender: FDA-Public Use
  Company Number: US-009507513-1912USA003307

PATIENT
  Sex: Female

DRUGS (3)
  1. ASMANEX [Suspect]
     Active Substance: MOMETASONE FUROATE
     Indication: ASTHMA
     Dosage: 2 PUFFS AT NIGHT
     Route: 055
     Dates: start: 201911
  2. ASMANEX [Suspect]
     Active Substance: MOMETASONE FUROATE
     Dosage: 2 PUFFS AT NIGHT
     Route: 055
     Dates: start: 201911
  3. PROVENTIL [Concomitant]
     Active Substance: ALBUTEROL
     Dosage: EMERGENCY INHALER

REACTIONS (4)
  - Product quality issue [Unknown]
  - Poor quality device used [Unknown]
  - Asthma [Not Recovered/Not Resolved]
  - Product dose omission [Unknown]

NARRATIVE: CASE EVENT DATE: 2019
